FAERS Safety Report 6817320-3 (Version None)
Quarter: 2010Q2

REPORT INFORMATION
  Report Type: 
  Country: None (occurrence: None)
  Receive Date: 20100630
  Receipt Date: 20100618
  Transmission Date: 20101027
  Serious: Yes (Hospitalization)
  Sender: FDA-Public Use
  Company Number: 001316

PATIENT
  Age: 73 Year
  Sex: Male
  Weight: 83 kg

DRUGS (15)
  1. PROSTAVASIN /00501501/ (PROSTAVASIN) [Suspect]
     Indication: PERIPHERAL ARTERIAL OCCLUSIVE DISEASE
     Dosage: (20 UG 3X/WEEK INTRA-ARTERIAL), 40 UG 3X WEEK INTRA-ARTERIAL
     Route: 013
     Dates: start: 20090512, end: 20090526
  2. PROSTAVASIN /00501501/ (PROSTAVASIN) [Suspect]
     Indication: PERIPHERAL ARTERIAL OCCLUSIVE DISEASE
     Dosage: (20 UG 3X/WEEK INTRA-ARTERIAL), 40 UG 3X WEEK INTRA-ARTERIAL
     Route: 013
     Dates: start: 20090526, end: 20090530
  3. BERLININSULIN H BASAL [Concomitant]
  4. BISOPROLOL [Concomitant]
  5. DIGITOXIN [Concomitant]
  6. DOSS [Concomitant]
  7. ERYPO FS [Concomitant]
  8. FALITHROM [Concomitant]
  9. FERRLECIT [Concomitant]
  10. FUROSEMIDE [Concomitant]
  11. HCT [Concomitant]
  12. METHIZOL [Concomitant]
  13. NOVAMINSULFON [Concomitant]
  14. SANDIMMUNE [Concomitant]
  15. SIMVASTATIN [Concomitant]

REACTIONS (16)
  - CARDIAC FIBRILLATION [None]
  - CHEST X-RAY ABNORMAL [None]
  - CHILLS [None]
  - COLD SWEAT [None]
  - CONFUSIONAL STATE [None]
  - DISORIENTATION [None]
  - ELECTROCARDIOGRAM ABNORMAL [None]
  - ERYTHEMA [None]
  - HYPOGLYCAEMIA [None]
  - HYPOTENSION [None]
  - NECROSIS [None]
  - PULSE ABSENT [None]
  - QRS AXIS ABNORMAL [None]
  - SKIN ULCER [None]
  - STAPHYLOCOCCAL INFECTION [None]
  - TONGUE DRY [None]
